FAERS Safety Report 25244388 (Version 3)
Quarter: 2025Q4

REPORT INFORMATION
  Report Type: Report from Study
  Country: US (occurrence: US)
  Receive Date: 20250428
  Receipt Date: 20251224
  Transmission Date: 20260117
  Serious: No
  Sender: SANDOZ
  Company Number: US-SANDOZ-SDZ2025US026160

PATIENT
  Age: 14 Year
  Sex: Male

DRUGS (2)
  1. OMNITROPE [Suspect]
     Active Substance: SOMATROPIN
     Indication: Product used for unknown indication
     Dosage: 1 MG, QD, 10/1.5 MG/ML
     Dates: start: 20240524
  2. OMNITROPE [Suspect]
     Active Substance: SOMATROPIN
     Dosage: 1.2 MG, QD

REACTIONS (4)
  - Circumstance or information capable of leading to medication error [Unknown]
  - Device use error [Unknown]
  - Device breakage [Unknown]
  - Device mechanical issue [Unknown]

NARRATIVE: CASE EVENT DATE: 20250424
